FAERS Safety Report 4819871-X (Version None)
Quarter: 2005Q4

REPORT INFORMATION
  Report Type: 
  Country: None (occurrence: None)
  Receive Date: 20051102
  Receipt Date: 20051026
  Transmission Date: 20060501
  Serious: Yes (Disabling)
  Sender: FDA-Public Use
  Company Number: 2005147356

PATIENT
  Age: 31 Year
  Sex: Male
  Weight: 80 kg

DRUGS (3)
  1. ATORVASTATIN CALCIUM [Suspect]
     Indication: MYOCARDIAL ISCHAEMIA
     Dosage: (20 MG), ORAL
     Route: 048
     Dates: start: 20010101
  2. ASPIRIN [Concomitant]
  3. RAMIPRIL [Concomitant]

REACTIONS (1)
  - TENDON RUPTURE [None]
